FAERS Safety Report 5357105-0 (Version None)
Quarter: 2007Q2

REPORT INFORMATION
  Report Type: 
  Country: None (occurrence: None)
  Receive Date: 20070614
  Receipt Date: 20070611
  Transmission Date: 20071010
  Serious: No
  Sender: FDA-Public Use
  Company Number: GBWYE544327APR07

PATIENT
  Sex: Male
  Weight: 57 kg

DRUGS (2)
  1. VENLAFAXIINE HCL [Suspect]
     Indication: DEPRESSION
     Dosage: 75 MG, FREQUENCY UNKNOWN
     Route: 048
     Dates: start: 20060301
  2. CORTICOSTEROID NOS [Concomitant]
     Dosage: UNKNOWN

REACTIONS (1)
  - RESPIRATORY DEPRESSION [None]
